FAERS Safety Report 9691910 (Version 1)
Quarter: 2013Q4

REPORT INFORMATION
  Report Type: Spontaneous
  Country: US (occurrence: US)
  Receive Date: 20131117
  Receipt Date: 20131117
  Transmission Date: 20140711
  Serious: No
  Sender: FDA-Public Use
  Company Number: US-009507513-1311USA005285

PATIENT
  Sex: Female

DRUGS (2)
  1. SAPHRIS [Suspect]
     Dosage: 5 MG, UNK
     Route: 060
  2. FLUVOXAMINE MALEATE [Concomitant]

REACTIONS (2)
  - Lethargy [Recovering/Resolving]
  - Dysarthria [Recovering/Resolving]
